FAERS Safety Report 11793792 (Version 1)
Quarter: 2015Q4

REPORT INFORMATION
  Report Type: Spontaneous
  Country: US (occurrence: US)
  Receive Date: 20151202
  Receipt Date: 20151202
  Transmission Date: 20160305
  Serious: Yes (Hospitalization, Other)
  Sender: FDA-Public Use
  Company Number: US-GLAXOSMITHKLINE-US2015170549

PATIENT
  Age: 71 Year
  Sex: Female

DRUGS (11)
  1. ADVAIR DISKUS [Suspect]
     Active Substance: FLUTICASONE PROPIONATE\SALMETEROL XINAFOATE
     Indication: ASTHMA
     Dosage: 1 PUFF(S), BID
     Route: 055
     Dates: start: 201411, end: 201510
  2. ISOSORBIDE MONONITRATE. [Concomitant]
     Active Substance: ISOSORBIDE MONONITRATE
  3. LEVOTHYROXINE. [Concomitant]
     Active Substance: LEVOTHYROXINE
  4. LORAZEPAM. [Concomitant]
     Active Substance: LORAZEPAM
  5. OLANZAPINE. [Concomitant]
     Active Substance: OLANZAPINE
  6. AMIODARONE [Concomitant]
     Active Substance: AMIODARONE
  7. CRANBERRY PILL [Concomitant]
  8. PANTOPRAZOLE [Concomitant]
     Active Substance: PANTOPRAZOLE SODIUM
  9. DONEPEZIL. [Concomitant]
     Active Substance: DONEPEZIL
  10. BUMETANIDE. [Concomitant]
     Active Substance: BUMETANIDE
  11. MEMANTINE. [Concomitant]
     Active Substance: MEMANTINE

REACTIONS (6)
  - Dehydration [Recovered/Resolved]
  - Palpitations [Unknown]
  - Peripheral swelling [Not Recovered/Not Resolved]
  - Cardiac failure congestive [Not Recovered/Not Resolved]
  - Drug ineffective [Not Recovered/Not Resolved]
  - Urinary tract infection [Recovered/Resolved]

NARRATIVE: CASE EVENT DATE: 201411
